FAERS Safety Report 5143793-0 (Version None)
Quarter: 2006Q4

REPORT INFORMATION
  Report Type: 
  Country: None (occurrence: None)
  Receive Date: 20061106
  Receipt Date: 20060928
  Transmission Date: 20070319
  Serious: Yes (Life-Threatening, Hospitalization, Other)
  Sender: FDA-Public Use
  Company Number: PHBS2006JP15216

PATIENT
  Age: 80 Year
  Sex: Male
  Weight: 62 kg

DRUGS (12)
  1. CARDENALIN [Concomitant]
     Indication: HYPERTENSION
     Dosage: 2 MG, UNK
     Route: 048
     Dates: start: 20060401
  2. URINORM [Concomitant]
     Indication: HYPERURICAEMIA
     Dosage: 100 MG, UNK
     Route: 048
     Dates: start: 20060401
  3. MAGMITT [Concomitant]
     Indication: CONSTIPATION
     Dosage: 1320 MG, UNK
     Route: 048
     Dates: start: 20060401
  4. DIOVAN [Suspect]
     Indication: HYPERTENSION
     Dosage: 80 MG/DAY
     Route: 048
     Dates: start: 20040101, end: 20060728
  5. NITOROL [Concomitant]
     Indication: MYOCARDIAL INFARCTION
     Dosage: 60 MG, UNK
     Route: 048
     Dates: start: 20060401
  6. THYRADIN [Concomitant]
     Indication: HYPOTHYROIDISM
     Dosage: 25 MG, UNK
     Route: 048
     Dates: start: 20060401
  7. ALESION [Concomitant]
     Indication: RHINITIS ALLERGIC
     Dosage: 20 MG, UNK
     Route: 048
     Dates: start: 20060401
  8. MEVALOTIN [Concomitant]
     Indication: HYPERLIPIDAEMIA
     Dosage: 10 MG, UNK
     Route: 048
     Dates: start: 20060401
  9. ASPIRIN [Concomitant]
     Indication: MYOCARDIAL INFARCTION
     Dosage: 100 MEQ/KG, UNK
     Route: 048
     Dates: start: 20060401
  10. CLEANAL [Concomitant]
     Indication: BRONCHITIS
     Dosage: 1200 MG, UNK
     Route: 048
     Dates: start: 20060401
  11. SM [Concomitant]
  12. SENNOSIDE [Concomitant]

REACTIONS (9)
  - C-REACTIVE PROTEIN INCREASED [None]
  - CELL MARKER INCREASED [None]
  - CHEST X-RAY ABNORMAL [None]
  - CHILLS [None]
  - COUGH [None]
  - DYSPNOEA [None]
  - INTERSTITIAL LUNG DISEASE [None]
  - PYREXIA [None]
  - WHITE BLOOD CELL COUNT INCREASED [None]
